FAERS Safety Report 25088256 (Version 1)
Quarter: 2025Q1

REPORT INFORMATION
  Report Type: Report from Study
  Country: DE (occurrence: DE)
  Receive Date: 20250318
  Receipt Date: 20250318
  Transmission Date: 20250409
  Serious: Yes (Other)
  Sender: CSL BEHRING
  Company Number: DE-BEH-2025191355

PATIENT
  Age: 82 Year
  Sex: Female
  Weight: 55 kg

DRUGS (6)
  1. PRIVIGEN [Suspect]
     Active Substance: HUMAN IMMUNOGLOBULIN G
     Indication: Plasma cell myeloma
     Route: 042
     Dates: start: 20241031
  2. PRIVIGEN [Suspect]
     Active Substance: HUMAN IMMUNOGLOBULIN G
     Route: 042
     Dates: start: 20241122
  3. ACYCLOVIR [Concomitant]
     Active Substance: ACYCLOVIR
     Route: 042
  4. AMPICILLIN [Concomitant]
     Active Substance: AMPICILLIN
     Route: 042
  5. CEFTRIAXONE [Concomitant]
     Active Substance: CEFTRIAXONE
     Route: 042
  6. DEXAMETHASONE [Concomitant]
     Active Substance: DEXAMETHASONE
     Route: 042

REACTIONS (8)
  - Meningitis pneumococcal [Fatal]
  - Pneumonia [Unknown]
  - Depressed level of consciousness [Fatal]
  - Speech disorder [Fatal]
  - Hemiparesis [Fatal]
  - Pyrexia [Fatal]
  - General physical health deterioration [Fatal]
  - Cough [Unknown]

NARRATIVE: CASE EVENT DATE: 20241212
